FAERS Safety Report 16634918 (Version 1)
Quarter: 2019Q3

REPORT INFORMATION
  Report Type: Other
  Country: DE (occurrence: DE)
  Receive Date: 20190726
  Receipt Date: 20190726
  Transmission Date: 20191004
  Serious: Yes (Hospitalization)
  Sender: FDA-Public Use
  Company Number: DE-LUPIN PHARMACEUTICALS INC.-2019-02223

PATIENT
  Age: 14 Year
  Sex: Male
  Weight: 74 kg

DRUGS (2)
  1. OSPOLOT [Concomitant]
     Active Substance: SULTHIAME
     Indication: IDIOPATHIC GENERALISED EPILEPSY
     Dosage: 200 MILLIGRAM
     Route: 048
     Dates: start: 201405
  2. LAMOTRIGINE. [Suspect]
     Active Substance: LAMOTRIGINE
     Indication: IDIOPATHIC GENERALISED EPILEPSY
     Dosage: 25 MILLIGRAM
     Route: 048
     Dates: start: 20180706, end: 20180730

REACTIONS (2)
  - Rash [Recovered/Resolved]
  - Pruritus [Recovered/Resolved]

NARRATIVE: CASE EVENT DATE: 20180715
